FAERS Safety Report 6898828-1 (Version None)
Quarter: 2010Q3

REPORT INFORMATION
  Report Type: 
  Country: None (occurrence: None)
  Receive Date: 20100802
  Receipt Date: 20100719
  Transmission Date: 20110219
  Serious: Yes (Other)
  Sender: FDA-Public Use
  Company Number: NL-MYLANLABS-2010S1012803

PATIENT
  Age: 57 Year
  Sex: Female

DRUGS (3)
  1. MERCAPTOPURINE [Suspect]
     Indication: CROHN'S DISEASE
     Route: 065
  2. PREDNISONE [Concomitant]
     Route: 065
  3. BUDESONIDE [Concomitant]
     Route: 065

REACTIONS (1)
  - PANCREATITIS ACUTE [None]
